FAERS Safety Report 8236377-9 (Version None)
Quarter: 2012Q1

REPORT INFORMATION
  Report Type: 
  Country: None (occurrence: None)
  Receive Date: 20120327
  Receipt Date: 20120321
  Transmission Date: 20120608
  Serious: Yes (Other)
  Sender: FDA-Public Use
  Company Number: JP-JNJFOC-20120211669

PATIENT
  Sex: Male
  Weight: 61 kg

DRUGS (13)
  1. ANTEBATE [Concomitant]
     Dates: end: 20120307
  2. STELARA [Suspect]
     Route: 058
     Dates: start: 20110920
  3. STELARA [Suspect]
     Dosage: INITIALLY EVERY 4 WEEKS, THEN EVERY 12 WEEKS (EXACT THERAPY DATES NOT PROVIDED)
     Route: 058
     Dates: start: 20110802
  4. STELARA [Suspect]
     Route: 058
     Dates: start: 20120220
  5. HEPARIN [Concomitant]
     Indication: PSORIASIS
     Route: 061
     Dates: start: 20110920, end: 20120307
  6. ISONIAZID [Concomitant]
     Route: 048
     Dates: end: 20120307
  7. CLOBETASOL PROPIONATE [Concomitant]
     Indication: PSORIASIS
     Route: 061
  8. FAMOTIDINE [Concomitant]
     Route: 048
  9. ALMETA [Concomitant]
     Indication: PSORIASIS
     Route: 061
  10. PYDOXAL [Concomitant]
     Route: 048
     Dates: end: 20120307
  11. STELARA [Suspect]
     Indication: PSORIASIS
     Route: 058
     Dates: start: 20111213
  12. CYCLOSPORINE [Suspect]
     Indication: PRODUCT USED FOR UNKNOWN INDICATION
  13. OXAROL [Concomitant]
     Indication: PSORIASIS
     Route: 061

REACTIONS (1)
  - TONSIL CANCER [None]
